FAERS Safety Report 19685625 (Version 1)
Quarter: 2021Q3

REPORT INFORMATION
  Report Type: Spontaneous
  Country: IT (occurrence: IT)
  Receive Date: 20210811
  Receipt Date: 20210811
  Transmission Date: 20211014
  Serious: Yes (Death)
  Sender: FDA-Public Use
  Company Number: IT-SUN PHARMACEUTICAL INDUSTRIES LTD-2021RR-307415

PATIENT
  Age: 77 Year
  Sex: Male

DRUGS (4)
  1. ETHAMBUTOL [Suspect]
     Active Substance: ETHAMBUTOL HYDROCHLORIDE
     Indication: VASCULAR GRAFT INFECTION
     Dosage: 1200 MILLIGRAM, QD
     Route: 048
  2. AZITHROMYCIN ANHYDROUS. [Suspect]
     Active Substance: AZITHROMYCIN ANHYDROUS
     Indication: VASCULAR GRAFT INFECTION
     Dosage: 500 MILLIGRAM, QD
     Route: 048
  3. AMIKACIN. [Suspect]
     Active Substance: AMIKACIN
     Indication: VASCULAR GRAFT INFECTION
     Dosage: 500 MILLIGRAM, 1DOSE/48HOUR
     Route: 042
  4. RIFAMPICIN [Suspect]
     Active Substance: RIFAMPIN
     Indication: VASCULAR GRAFT INFECTION
     Dosage: 600 MILLIGRAM, QD
     Route: 048

REACTIONS (1)
  - Drug ineffective [Fatal]
